FAERS Safety Report 7855073-0 (Version None)
Quarter: 2011Q4

REPORT INFORMATION
  Report Type: 
  Country: None (occurrence: None)
  Receive Date: 20111026
  Receipt Date: 20111014
  Transmission Date: 20120403
  Serious: Yes (Hospitalization)
  Sender: FDA-Public Use
  Company Number: BE-GILEAD-2011-0043524

PATIENT
  Age: 26 Year
  Sex: Male

DRUGS (3)
  1. RITONAVIR [Suspect]
     Indication: HIV INFECTION
     Route: 048
     Dates: start: 20110118
  2. DARUNAVIR ETHANOLATE [Suspect]
     Indication: HIV INFECTION
     Dates: start: 20110118
  3. EMTRICITABINE/TENOFOVIR DISOPROXIL FUMARATE [Suspect]
     Indication: HIV INFECTION
     Route: 048
     Dates: start: 20110118

REACTIONS (2)
  - PSYCHOTIC DISORDER [None]
  - OVERDOSE [None]
